FAERS Safety Report 5805376-6 (Version None)
Quarter: 2008Q3

REPORT INFORMATION
  Report Type: 
  Country: None (occurrence: None)
  Receive Date: 20080708
  Receipt Date: 20080708
  Transmission Date: 20090109
  Serious: Yes (Life-Threatening, Hospitalization, Disabling, Other)
  Sender: FDA-Public Use
  Company Number: None

PATIENT
  Sex: Female

DRUGS (4)
  1. TRIAMINIC SRT [Suspect]
     Indication: UPPER RESPIRATORY TRACT INFECTION
     Dosage: 4 OZ IN FOUR DAYS
     Dates: start: 19961028
  2. TRIAMINIC SRT [Suspect]
     Indication: UPPER RESPIRATORY TRACT INFECTION
     Dosage: 4 OZ IN FOUR DAYS
     Dates: start: 19961029
  3. TRIAMINIC SRT [Suspect]
     Indication: UPPER RESPIRATORY TRACT INFECTION
     Dosage: 4 OZ IN FOUR DAYS
     Dates: start: 19961030
  4. TRIAMINIC SRT [Suspect]
     Indication: UPPER RESPIRATORY TRACT INFECTION
     Dosage: 4 OZ IN FOUR DAYS
     Dates: start: 19961031

REACTIONS (2)
  - INCORRECT DOSE ADMINISTERED [None]
  - MALAISE [None]
